FAERS Safety Report 9422166 (Version 1)
Quarter: 2013Q3

REPORT INFORMATION
  Report Type: Spontaneous
  Country: US (occurrence: None)
  Receive Date: 20130725
  Receipt Date: 20130725
  Transmission Date: 20140515
  Serious: Yes (Hospitalization)
  Sender: FDA-Public Use
  Company Number: None

PATIENT
  Age: 51 Year
  Sex: Male
  Weight: 66.4 kg

DRUGS (4)
  1. ACTEMRA [Suspect]
     Indication: TRANSPLANT REJECTION
     Dosage: IVPB
     Dates: start: 20130502
  2. ACTEMRA [Suspect]
     Indication: PROPHYLAXIS
     Dosage: IVPB
     Dates: start: 20130502
  3. PROGRAF [Concomitant]
  4. PREDNISONE [Concomitant]

REACTIONS (4)
  - Abdominal pain [None]
  - Large intestinal stenosis [None]
  - Large intestine perforation [None]
  - Post procedural complication [None]
